FAERS Safety Report 11370531 (Version 2)
Quarter: 2015Q3

REPORT INFORMATION
  Report Type: Report from Study
  Country: BR (occurrence: BR)
  Receive Date: 20150812
  Receipt Date: 20150917
  Transmission Date: 20151125
  Serious: Yes (Hospitalization, Other)
  Sender: FDA-Public Use
  Company Number: BR-BIOGENIDEC-2014BI097819

PATIENT
  Age: 48 Year
  Sex: Male

DRUGS (9)
  1. OLCADIL [Concomitant]
     Active Substance: CLOXAZOLAM
     Indication: HYPERSOMNIA
  2. DANTROLENE [Concomitant]
     Active Substance: DANTROLENE
     Indication: MUSCLE SPASMS
  3. TYSABRI [Suspect]
     Active Substance: NATALIZUMAB
     Indication: MULTIPLE SCLEROSIS
     Route: 042
     Dates: start: 20140513
  4. FAMPYRA [Concomitant]
     Active Substance: DALFAMPRIDINE
     Indication: GAIT DISTURBANCE
     Route: 048
     Dates: start: 20140910
  5. DIAZEPAM. [Concomitant]
     Active Substance: DIAZEPAM
     Indication: HYPERSOMNIA
  6. COPAXONE [Concomitant]
     Active Substance: GLATIRAMER ACETATE
     Indication: MULTIPLE SCLEROSIS
     Dates: end: 201407
  7. ALPRAZOLAM. [Concomitant]
     Active Substance: ALPRAZOLAM
     Indication: HYPERSOMNIA
  8. DANTROLENE [Concomitant]
     Active Substance: DANTROLENE
     Indication: MUSCLE RELAXANT THERAPY
  9. FAMPYRA [Concomitant]
     Active Substance: DALFAMPRIDINE
     Indication: GAIT DISTURBANCE
     Route: 048
     Dates: start: 20140801, end: 20140909

REACTIONS (8)
  - Insomnia [Not Recovered/Not Resolved]
  - Musculoskeletal disorder [Unknown]
  - Confusional state [Not Recovered/Not Resolved]
  - CSF volume increased [Recovered/Resolved]
  - Depression [Not Recovered/Not Resolved]
  - Cerebrospinal fluid leakage [Unknown]
  - Muscle spasms [Not Recovered/Not Resolved]
  - Brain oedema [Unknown]

NARRATIVE: CASE EVENT DATE: 2014
